FAERS Safety Report 18738806 (Version 2)
Quarter: 2021Q1

REPORT INFORMATION
  Report Type: Spontaneous
  Country: US (occurrence: US)
  Receive Date: 20210114
  Receipt Date: 20210119
  Transmission Date: 20210419
  Serious: No
  Sender: FDA-Public Use
  Company Number: NVSC2021US006525

PATIENT
  Sex: Female

DRUGS (4)
  1. LATANOPROST. [Suspect]
     Active Substance: LATANOPROST
     Dosage: 2.5 UNK
     Route: 065
  2. LATANOPROST. [Suspect]
     Active Substance: LATANOPROST
     Indication: PRODUCT USED FOR UNKNOWN INDICATION
     Dosage: 2.5 UNK
     Route: 065
  3. LATANOPROST. [Suspect]
     Active Substance: LATANOPROST
     Dosage: 2.5 UNK
     Route: 065
  4. LATANOPROST. [Suspect]
     Active Substance: LATANOPROST
     Dosage: 2.5 UNK
     Route: 065

REACTIONS (2)
  - Limb injury [Unknown]
  - Product packaging difficult to open [Unknown]
